FAERS Safety Report 12071979 (Version 1)
Quarter: 2016Q1

REPORT INFORMATION
  Report Type: Spontaneous
  Country: US (occurrence: None)
  Receive Date: 20160211
  Receipt Date: 20160211
  Transmission Date: 20160526
  Serious: Yes (Death)
  Sender: FDA-Public Use
  Company Number: None

PATIENT
  Age: 3 Month
  Sex: Female

DRUGS (1)
  1. SYNAGIS [Suspect]
     Active Substance: PALIVIZUMAB
     Indication: TRISOMY 18
     Dosage: 15 MG/KG ONCE MONTHLY IM
     Route: 030
     Dates: start: 201512, end: 201602

REACTIONS (1)
  - Death [None]

NARRATIVE: CASE EVENT DATE: 20160210
